FAERS Safety Report 14741628 (Version 3)
Quarter: 2018Q2

REPORT INFORMATION
  Report Type: Spontaneous
  Country: US (occurrence: US)
  Receive Date: 20180410
  Receipt Date: 20180601
  Transmission Date: 20180711
  Serious: Yes (Life-Threatening, Hospitalization)
  Sender: FDA-Public Use
  Company Number: US-BAUSCH-BL-2018-009657

PATIENT
  Age: 67 Year
  Sex: Male

DRUGS (1)
  1. 5-FLUOROURACIL [Suspect]
     Active Substance: FLUOROURACIL
     Indication: ACTINIC KERATOSIS
     Dosage: DAILY FOR ONE WEEK ON HIS BILATERAL FOREARMS
     Route: 061

REACTIONS (12)
  - Lethargy [Recovered/Resolved]
  - Fatigue [Recovered/Resolved]
  - Skin erosion [Recovered/Resolved]
  - Mucosal inflammation [Recovered/Resolved]
  - Skin exfoliation [Recovered/Resolved]
  - Mouth ulceration [Recovered/Resolved]
  - Dehydration [Recovered/Resolved]
  - Skin plaque [Recovered/Resolved]
  - Weight decreased [Recovered/Resolved]
  - Pyrexia [Recovered/Resolved]
  - Erythema [Recovered/Resolved]
  - Decreased appetite [Recovered/Resolved]
